FAERS Safety Report 4432717-7 (Version None)
Quarter: 2004Q3

REPORT INFORMATION
  Report Type: 
  Country: None (occurrence: None)
  Receive Date: 20040820
  Receipt Date: 20040811
  Transmission Date: 20050211
  Serious: Yes (Hospitalization)
  Sender: FDA-Public Use
  Company Number: 2004-119329-NL

PATIENT
  Age: 56 Year
  Sex: Female

DRUGS (1)
  1. VECURONIUM BROMIDE [Suspect]
     Indication: INTUBATION
     Dosage: 5 MG ONCE
     Route: 042
     Dates: start: 20040805, end: 20040805

REACTIONS (3)
  - ABASIA [None]
  - DELAYED RECOVERY FROM ANAESTHESIA [None]
  - MYASTHENIC SYNDROME [None]
